FAERS Safety Report 22105728 (Version 1)
Quarter: 2023Q1

REPORT INFORMATION
  Report Type: Spontaneous
  Country: IN (occurrence: IN)
  Receive Date: 20230317
  Receipt Date: 20230317
  Transmission Date: 20230417
  Serious: Yes (Death, Other)
  Sender: FDA-Public Use
  Company Number: IN-TOLMAR, INC.-23IN039432

PATIENT
  Age: 67 Year
  Sex: Male

DRUGS (2)
  1. ELIGARD [Suspect]
     Active Substance: LEUPROLIDE ACETATE
     Indication: Prostate cancer
     Dosage: 45 MILLIGRAM, Q 3 MONTH
     Dates: start: 202211
  2. ELIGARD [Suspect]
     Active Substance: LEUPROLIDE ACETATE
     Dosage: 45 MILLIGRAM, Q 3 MONTH

REACTIONS (4)
  - Dysstasia [Unknown]
  - Loss of control of legs [Unknown]
  - Metastases to bone [Fatal]
  - Inappropriate schedule of product administration [Unknown]
